FAERS Safety Report 9132304 (Version 1)
Quarter: 2013Q1

REPORT INFORMATION
  Report Type: Spontaneous
  Country: US (occurrence: US)
  Receive Date: 20130208
  Receipt Date: 20130208
  Transmission Date: 20140127
  Serious: Yes (Other)
  Sender: FDA-Public Use
  Company Number: US-BAYER-2013-017453

PATIENT
  Age: 85 Year
  Sex: Male
  Weight: 59.88 kg

DRUGS (13)
  1. XARELTO [Suspect]
     Indication: CEREBROVASCULAR ACCIDENT PROPHYLAXIS
     Route: 048
     Dates: start: 20120909, end: 20130108
  2. XARELTO [Suspect]
     Indication: ATRIAL FIBRILLATION
     Route: 048
     Dates: start: 20130121
  3. ACETYLSALICYLIC ACID({=100 MG) [Suspect]
     Indication: PRODUCT USED FOR UNKNOWN INDICATION
     Route: 065
  4. METOPROLOL [Concomitant]
     Indication: BLOOD PRESSURE ABNORMAL
     Dosage: 50 MG, QD
     Route: 048
  5. XANAX [Concomitant]
     Indication: SLEEP DISORDER
     Dosage: .25 MG, QD
     Route: 048
  6. CLARITIN [Concomitant]
     Indication: SEASONAL ALLERGY
     Route: 048
  7. FINASTERIDE [Concomitant]
     Indication: PRODUCT USED FOR UNKNOWN INDICATION
     Dosage: 5 MG, QD
     Route: 048
  8. TAMSULOSIN [Concomitant]
     Indication: PRODUCT USED FOR UNKNOWN INDICATION
     Dosage: .4 MG, QD
     Route: 048
  9. BENAZEPRIL [Concomitant]
     Indication: PRODUCT USED FOR UNKNOWN INDICATION
     Dosage: 5 MG, QD
     Route: 048
  10. PAROXETINE [Concomitant]
     Indication: ANXIETY
     Dosage: 10 MG, QD
     Route: 048
  11. SIMVASTATIN [Concomitant]
     Indication: BLOOD CHOLESTEROL ABNORMAL
     Route: 048
  12. HYDROXYZINE PAMOATE [Concomitant]
     Indication: PRODUCT USED FOR UNKNOWN INDICATION
     Dosage: 25 MG, UNK
     Route: 048
  13. SOTALOL [Concomitant]
     Dosage: 80 MG, BID
     Route: 048

REACTIONS (5)
  - Medical device complication [Unknown]
  - Retinal vascular thrombosis [Not Recovered/Not Resolved]
  - Hallucination, visual [Not Recovered/Not Resolved]
  - Visual field defect [Not Recovered/Not Resolved]
  - Fatigue [Unknown]
